FAERS Safety Report 5920027-8 (Version None)
Quarter: 2008Q4

REPORT INFORMATION
  Report Type: 
  Country: None (occurrence: None)
  Receive Date: 20081014
  Receipt Date: 20081001
  Transmission Date: 20090506
  Serious: Yes (Other)
  Sender: FDA-Public Use
  Company Number: 230240K08USA

PATIENT
  Age: 62 Year
  Sex: Male

DRUGS (2)
  1. REBIF [Suspect]
     Indication: MULTIPLE SCLEROSIS
     Dosage: 44 MCG,3 IN 1 WEEKS, SUBCUTANEOUS
     Route: 058
     Dates: start: 20040415, end: 20080801
  2. NAPROXEN [Concomitant]

REACTIONS (5)
  - BACK DISORDER [None]
  - LOCALISED INFECTION [None]
  - ROAD TRAFFIC ACCIDENT [None]
  - SPINAL FUSION SURGERY [None]
  - UPPER LIMB FRACTURE [None]
